FAERS Safety Report 7791387-0 (Version None)
Quarter: 2011Q4

REPORT INFORMATION
  Report Type: 
  Country: None (occurrence: None)
  Receive Date: 20111003
  Receipt Date: 20110920
  Transmission Date: 20120403
  Serious: No
  Sender: FDA-Public Use
  Company Number: BE-ELI_LILLY_AND_COMPANY-BE201109006693

PATIENT
  Sex: Male

DRUGS (1)
  1. CYMBALTA [Suspect]

REACTIONS (1)
  - HEPATIC ENZYME INCREASED [None]
